FAERS Safety Report 7010995-8 (Version None)
Quarter: 2010Q3

REPORT INFORMATION
  Report Type: 
  Country: None (occurrence: None)
  Receive Date: 20100923
  Receipt Date: 20090107
  Transmission Date: 20110219
  Serious: No
  Sender: FDA-Public Use
  Company Number: US-WYE-H06401508

PATIENT
  Sex: Female
  Weight: 95.34 kg

DRUGS (4)
  1. EFFEXOR XR [Suspect]
     Indication: DEPRESSION
     Route: 048
     Dates: start: 20080501, end: 20080101
  2. EFFEXOR XR [Suspect]
     Route: 048
     Dates: start: 20080101, end: 20080101
  3. EFFEXOR XR [Suspect]
     Route: 048
     Dates: start: 20080101, end: 20081001
  4. EFFEXOR XR [Suspect]
     Dosage: ^TAPERING BY TAKING ONE CAPSULE EVERY OTHER DAY THEN ONE CAPSULE EVERY THIRD DAY^
     Route: 048
     Dates: start: 20081001

REACTIONS (10)
  - ABDOMINAL PAIN [None]
  - ANGER [None]
  - ANXIETY [None]
  - DRUG WITHDRAWAL SYNDROME [None]
  - FEELING ABNORMAL [None]
  - HEADACHE [None]
  - HYPERHIDROSIS [None]
  - INSOMNIA [None]
  - IRRITABILITY [None]
  - PARAESTHESIA [None]
